FAERS Safety Report 17983635 (Version 2)
Quarter: 2020Q3

REPORT INFORMATION
  Report Type: Report from Study
  Country: US (occurrence: US)
  Receive Date: 20200706
  Receipt Date: 20200716
  Transmission Date: 20201103
  Serious: Yes (Death, Life-Threatening, Hospitalization)
  Sender: FDA-Public Use
  Company Number: US-ROCHE-2612581

PATIENT
  Age: 69 Year
  Sex: Female
  Weight: 64 kg

DRUGS (4)
  1. PERTUZUMAB. [Suspect]
     Active Substance: PERTUZUMAB
     Indication: INVASIVE BREAST CARCINOMA
     Dosage: 420 MG ON DAYS 1 AND 22; 840 MG C1D1 ONLY
     Route: 042
     Dates: start: 20200518
  2. TRASTUZUMAB. [Suspect]
     Active Substance: TRASTUZUMAB
     Indication: INVASIVE BREAST CARCINOMA
     Dosage: 6 MG/KG ON DAYS 1 AND 22; 8 MG/KG IV C1D1 ONLY
     Route: 042
     Dates: start: 20200518
  3. BLINDED ATEZOLIZUMAB [Suspect]
     Active Substance: ATEZOLIZUMAB
     Indication: INVASIVE BREAST CARCINOMA
     Route: 042
     Dates: start: 20200519
  4. PACLITAXEL. [Suspect]
     Active Substance: PACLITAXEL
     Indication: INVASIVE BREAST CARCINOMA
     Route: 042
     Dates: start: 20200518

REACTIONS (3)
  - Acute kidney injury [Recovered/Resolved]
  - Pneumonia [Recovered/Resolved]
  - Hepatic failure [Fatal]

NARRATIVE: CASE EVENT DATE: 20200520
